FAERS Safety Report 7416471-2 (Version None)
Quarter: 2011Q2

REPORT INFORMATION
  Report Type: 
  Country: None (occurrence: None)
  Receive Date: 20110414
  Receipt Date: 20091123
  Transmission Date: 20111010
  Serious: Yes (Hospitalization, Other)
  Sender: FDA-Public Use
  Company Number: US-BAYER-200940860NA

PATIENT
  Age: 56 Year
  Sex: Female
  Weight: 58.957 kg

DRUGS (13)
  1. PROTAMINE SULFATE [Concomitant]
     Dosage: 300 MG, UNK
     Route: 042
     Dates: start: 20070403
  2. PANCURONIUM BROMIDE [Concomitant]
     Dosage: 20 MG, UNK
     Route: 042
     Dates: start: 20070403
  3. DOBUTAMINE HCL [Concomitant]
     Indication: PRODUCT USED FOR UNKNOWN INDICATION
     Dosage: 3 MCG/KG/MIN
     Route: 042
     Dates: start: 20070101
  4. CLINDAMYCIN [Concomitant]
     Dosage: 1.8 G, UNK
     Route: 042
     Dates: start: 20070403
  5. HEPARIN [Concomitant]
     Dosage: 32000 U, UNK
     Route: 042
     Dates: start: 20070403
  6. LIDOCAINE [Concomitant]
     Dosage: 100 MG, UNK
     Route: 042
     Dates: start: 20070403
  7. TRASYLOL [Suspect]
     Indication: ARTERIOVENOUS FISTULA
  8. MYCOPHENOLATE MOFETIL [Concomitant]
     Dosage: 500 MG, UNK
     Route: 042
     Dates: start: 20070403
  9. REGULAR INSULIN [Concomitant]
     Dosage: TITRATED
     Route: 042
     Dates: start: 20070403
  10. TRASYLOL [Suspect]
     Indication: HEART TRANSPLANT
     Dosage: INTIAL(TEST) DOSE: 1ML , 50ML/HOUR
     Route: 042
     Dates: start: 20070403, end: 20070404
  11. COUMADIN [Concomitant]
     Indication: PRODUCT USED FOR UNKNOWN INDICATION
     Dosage: 6 MG/7 MG
     Route: 048
     Dates: start: 20070101
  12. ALBUMIN (HUMAN) [Concomitant]
     Dosage: 100 ML, UNK
     Route: 042
     Dates: start: 20070403
  13. VERSED [Concomitant]
     Dosage: 15 MG, UNK
     Route: 042
     Dates: start: 20070403

REACTIONS (9)
  - INJURY [None]
  - ANHEDONIA [None]
  - RENAL FAILURE ACUTE [None]
  - UNEVALUABLE EVENT [None]
  - DEPRESSION [None]
  - FEAR [None]
  - PAIN [None]
  - ANXIETY [None]
  - RENAL FAILURE [None]
